FAERS Safety Report 5081703-5 (Version None)
Quarter: 2006Q3

REPORT INFORMATION
  Report Type: 
  Country: None (occurrence: None)
  Receive Date: 20060811
  Receipt Date: 20060801
  Transmission Date: 20061208
  Serious: Yes (Hospitalization)
  Sender: FDA-Public Use
  Company Number: 228181

PATIENT
  Age: 73 Year
  Sex: Male
  Weight: 74 kg

DRUGS (9)
  1. RITUXIMAB(RITUXIMAB) CONC FOR SOLUTION FOR INFUSION [Suspect]
     Indication: CHRONIC LYMPHOCYTIC LEUKAEMIA
     Dosage: 375 MG/M2 TO 500 MG/M2, INTRAVENOUS
     Route: 042
     Dates: start: 20060321, end: 20060712
  2. FLUDARABINE PHOSPHATE [Suspect]
     Indication: CHRONIC LYMPHOCYTIC LEUKAEMIA
     Dosage: 25 MG/M2, INTRAVENOUS
     Route: 042
     Dates: start: 20060322, end: 20060714
  3. CYCLOPHOSPHAMIDE [Suspect]
     Indication: CHRONIC LYMPHOCYTIC LEUKAEMIA
     Dosage: 250 MG/M2, INTRAVENOUS
     Route: 042
     Dates: start: 20060322, end: 20060714
  4. PROPAFENONE (PROPAFENONE HYDROCHLORIDE) [Concomitant]
  5. ASPIRIN [Concomitant]
  6. DICLOFENAC SODIUM [Concomitant]
  7. ACYCLOVIR [Concomitant]
  8. TAMSULOSIN (TAMSULOSIN HYDROCHLORIDE) [Concomitant]
  9. SULFAMETHOXAZOLE + TRIMETHOPRIM [Concomitant]

REACTIONS (1)
  - NEUTROPENIA [None]
